FAERS Safety Report 4552643-2 (Version None)
Quarter: 2005Q1

REPORT INFORMATION
  Report Type: 
  Country: None (occurrence: None)
  Receive Date: 20050112
  Receipt Date: 20050112
  Transmission Date: 20050727
  Serious: Yes (Other)
  Sender: FDA-Public Use
  Company Number: None

PATIENT
  Age: 63 Year
  Sex: Female

DRUGS (1)
  1. OXAPROZIN [Suspect]
     Dosage: ONE TABLET DAILY [BRAND -OFF AND ON FOR YEARS, GENERIC 1 WEEK)

REACTIONS (3)
  - ABNORMAL DREAMS [None]
  - FATIGUE [None]
  - HYPERSOMNIA [None]
